FAERS Safety Report 8598560-2 (Version None)
Quarter: 2012Q3

REPORT INFORMATION
  Report Type: 
  Country: None (occurrence: None)
  Receive Date: 20120816
  Receipt Date: 19941202
  Transmission Date: 20120928
  Serious: Yes (Other)
  Sender: FDA-Public Use
  Company Number: US-ROCHE-1099244

PATIENT
  Sex: Male

DRUGS (3)
  1. ACTIVASE [Suspect]
     Dosage: 150 MG/HOUR
  2. ACTIVASE [Suspect]
     Dosage: 10 MG BOLUS
  3. ACTIVASE [Suspect]
     Indication: ACUTE MYOCARDIAL INFARCTION
     Dosage: 100 MG IN 100 CC NS

REACTIONS (4)
  - BRADYCARDIA [None]
  - HYPERHIDROSIS [None]
  - REPERFUSION ARRHYTHMIA [None]
  - CHEST PAIN [None]
